FAERS Safety Report 17250139 (Version 1)
Quarter: 2020Q1

REPORT INFORMATION
  Report Type: Spontaneous
  Country: US (occurrence: US)
  Receive Date: 20200109
  Receipt Date: 20200109
  Transmission Date: 20200409
  Serious: Yes (Hospitalization)
  Sender: FDA-Public Use
  Company Number: US-TEVA-2020-US-1165549

PATIENT
  Sex: Female

DRUGS (1)
  1. WARFARIN TEVA [Suspect]
     Active Substance: WARFARIN SODIUM
     Dosage: UNIT DOSE: UNKNOWN
     Route: 065

REACTIONS (1)
  - Cellulitis [Unknown]
